FAERS Safety Report 24732617 (Version 1)
Quarter: 2024Q4

REPORT INFORMATION
  Report Type: Spontaneous
  Country: US (occurrence: None)
  Receive Date: 20241213
  Receipt Date: 20241213
  Transmission Date: 20250115
  Serious: Yes (Other)
  Sender: Public
  Company Number: None

PATIENT
  Age: 66 Year
  Sex: Female
  Weight: 112.95 kg

DRUGS (3)
  1. INFLIXIMAB-AXXQ [Suspect]
     Active Substance: INFLIXIMAB-AXXQ
     Indication: Hidradenitis
     Dosage: OTHER FREQUENCY : ONCE A MONTH;?
     Route: 042
     Dates: start: 20240303
  2. ACETAMINOPHEN [Concomitant]
     Active Substance: ACETAMINOPHEN
  3. DIPHENHYDRAMINE [Concomitant]
     Active Substance: DIPHENHYDRAMINE

REACTIONS (10)
  - Infusion related reaction [None]
  - Therapy interrupted [None]
  - Nausea [None]
  - Cold sweat [None]
  - Vomiting [None]
  - Blood magnesium decreased [None]
  - Fall [None]
  - Fatigue [None]
  - Arthralgia [None]
  - Malaise [None]

NARRATIVE: CASE EVENT DATE: 20241208
